FAERS Safety Report 23151676 (Version 2)
Quarter: 2023Q4

REPORT INFORMATION
  Report Type: Spontaneous
  Country: JP (occurrence: JP)
  Receive Date: 20231107
  Receipt Date: 20231208
  Transmission Date: 20240110
  Serious: No
  Sender: FDA-Public Use
  Company Number: JP-JNJFOC-20231046193

PATIENT
  Age: 53 Year
  Sex: Female

DRUGS (5)
  1. SIMPONI [Suspect]
     Active Substance: GOLIMUMAB
     Indication: Colitis ulcerative
     Dosage: STRENGTH: 50.00 MG / 0.50 ML
     Route: 058
  2. SIMPONI [Suspect]
     Active Substance: GOLIMUMAB
     Dosage: DOSE UNKNOWN
     Route: 058
  3. SIMPONI [Suspect]
     Active Substance: GOLIMUMAB
     Dosage: DOSE UNKNOWN
     Route: 058
  4. SIMPONI [Suspect]
     Active Substance: GOLIMUMAB
     Route: 058
  5. SIMPONI [Suspect]
     Active Substance: GOLIMUMAB
     Route: 058
     Dates: start: 20231013, end: 20231013

REACTIONS (2)
  - Needle issue [Unknown]
  - Application site bruise [Unknown]

NARRATIVE: CASE EVENT DATE: 20231013
